FAERS Safety Report 8051576-7 (Version None)
Quarter: 2012Q1

REPORT INFORMATION
  Report Type: 
  Country: None (occurrence: None)
  Receive Date: 20120117
  Receipt Date: 20120104
  Transmission Date: 20120608
  Serious: Yes (Hospitalization)
  Sender: FDA-Public Use
  Company Number: NL-AMGEN-NLDCT2012001517

PATIENT
  Age: 62 Year
  Sex: Male

DRUGS (9)
  1. ETANERCEPT [Suspect]
     Indication: PSORIASIS
  2. BETAMETHASONE [Concomitant]
     Dosage: UNK UNK, UNK
  3. DICLOFENAC [Suspect]
     Indication: UPPER LIMB FRACTURE
     Dosage: UNK
  4. CLOBETASOL PROPIONATE [Concomitant]
     Dosage: UNK UNK, UNK
  5. CALCITRIOL [Concomitant]
     Dosage: UNK UNK, UNK
  6. ETANERCEPT [Suspect]
     Indication: PSORIATIC ARTHROPATHY
     Dosage: UNK
  7. CALCIPOTRIENE [Concomitant]
     Dosage: UNK UNK, UNK
  8. ASPIRIN [Concomitant]
     Dosage: UNK UNK, UNK
  9. KETOCONAZOLE [Concomitant]
     Dosage: UNK UNK, UNK

REACTIONS (1)
  - INTESTINAL HAEMORRHAGE [None]
